FAERS Safety Report 24873647 (Version 1)
Quarter: 2025Q1

REPORT INFORMATION
  Report Type: Spontaneous
  Country: US (occurrence: US)
  Receive Date: 20250122
  Receipt Date: 20250122
  Transmission Date: 20250408
  Serious: Yes (Hospitalization)
  Sender: MYLAN
  Company Number: US-MYLANLABS-2025M1004231

PATIENT
  Age: 19 Year
  Sex: Female

DRUGS (7)
  1. SERTRALINE [Suspect]
     Active Substance: SERTRALINE HYDROCHLORIDE
     Indication: Cholestatic pruritus
     Route: 065
  2. GABAPENTIN [Suspect]
     Active Substance: GABAPENTIN
     Indication: Cholestatic pruritus
     Route: 065
  3. LIDOCAINE [Suspect]
     Active Substance: LIDOCAINE
     Indication: Cholestatic pruritus
     Route: 065
  4. URSODIOL [Suspect]
     Active Substance: URSODIOL
     Indication: Cholestatic pruritus
     Route: 065
  5. COLESEVELAM [Suspect]
     Active Substance: COLESEVELAM
     Indication: Cholestatic pruritus
     Route: 065
  6. CHOLESTYRAMINE [Suspect]
     Active Substance: CHOLESTYRAMINE
     Indication: Cholestatic pruritus
     Route: 065
  7. NALTREXONE [Suspect]
     Active Substance: NALTREXONE
     Indication: Cholestatic pruritus
     Route: 065

REACTIONS (2)
  - Drug ineffective for unapproved indication [Unknown]
  - Off label use [Unknown]
